FAERS Safety Report 25234496 (Version 1)
Quarter: 2025Q2

REPORT INFORMATION
  Report Type: Report from Study
  Country: PL (occurrence: PL)
  Receive Date: 20250424
  Receipt Date: 20250424
  Transmission Date: 20250716
  Serious: Yes (Hospitalization)
  Sender: ALEXION PHARMACEUTICALS
  Company Number: PL-ASTRAZENECA-202504GLO014787PL

PATIENT
  Age: 48 Year
  Weight: 57 kg

DRUGS (4)
  1. ANIFROLUMAB [Suspect]
     Active Substance: ANIFROLUMAB
     Indication: Systemic lupus erythematosus
  2. METOPROLOL [Concomitant]
     Active Substance: METOPROLOL
     Route: 065
  3. Lorista HL [Concomitant]
     Route: 065
  4. Calperos [Concomitant]

REACTIONS (1)
  - Infection [Recovering/Resolving]
